FAERS Safety Report 8406096-4 (Version None)
Quarter: 2012Q2

REPORT INFORMATION
  Report Type: 
  Country: None (occurrence: None)
  Receive Date: 20120323
  Receipt Date: 20110506
  Transmission Date: 20120825
  Serious: Yes (Hospitalization)
  Sender: FDA-Public Use
  Company Number: 163-21880-11011956

PATIENT
  Age: 77 Year
  Sex: Male
  Weight: 90.7194 kg

DRUGS (10)
  1. VALTREX (VALACICLOVIR HYDROCHLORIDE)(UNKNOWN [Concomitant]
  2. DECADRON [Concomitant]
  3. VITAMIN B12(CYANOCOBALAMIN)(UNKNOWN) [Concomitant]
  4. VITAMIN B6(PYRIDOXINE HYDROCHLORIDE)(UNKNOWN) [Concomitant]
  5. VITAMIN D(ERGOCALCIFEROL)(UNKNOWN) [Concomitant]
  6. REVLIMID [Suspect]
     Indication: MULTIPLE MYELOMA
     Dosage: 5 MG, DAILY FOR 21 DAYS OUT OF 28, PO
     Route: 048
     Dates: start: 20110119
  7. ZOLEDRONIC ACID (ZOLEDRONIC ACID)(UNKNOWN) [Concomitant]
  8. NEURONTIN [Concomitant]
  9. COUMADIN [Concomitant]
  10. FLUZONE (INFLUENZA VIRUS VACCINE POLYVALENT)(INJECTION) [Concomitant]

REACTIONS (6)
  - PAIN IN EXTREMITY [None]
  - MUSCULAR WEAKNESS [None]
  - NEUROPATHY PERIPHERAL [None]
  - ASTHENIA [None]
  - RASH [None]
  - HYPOAESTHESIA [None]
